FAERS Safety Report 6718722-6 (Version None)
Quarter: 2010Q2

REPORT INFORMATION
  Report Type: 
  Country: None (occurrence: None)
  Receive Date: 20100505
  Receipt Date: 20100426
  Transmission Date: 20101027
  Serious: Yes (Life-Threatening, Hospitalization)
  Sender: FDA-Public Use
  Company Number: 010819

PATIENT
  Sex: Female

DRUGS (13)
  1. KEPPRA [Suspect]
     Dosage: (3 G, 100MG/ML INTRAVENOUS (NOT OTHERWISE SPECIFIED)0
     Route: 042
     Dates: start: 20100309, end: 20100317
  2. NESDONAL (NESDONAL) (NOT SPECIFIED) [Suspect]
     Dosage: (6 G, 1G INTRAVENOUS (NOT OTHERWISE SPECIFIED))
     Route: 042
     Dates: start: 20100308, end: 20100323
  3. INEXIUM /01479302/ (INEXIUM) (NOT SPECIFIED) [Suspect]
     Dosage: (40 MG QD INTRAVENOUS (NOT OTHERWISE SPECIFIED))
     Route: 042
     Dates: start: 20100308, end: 20100321
  4. HEPARIN [Concomitant]
  5. PERFALGAN [Concomitant]
  6. AUGMENTIN '125' [Concomitant]
  7. NORADRENALINE /00127501/ [Concomitant]
  8. ROCEPHIN [Concomitant]
  9. IMIPENEM AND CILASTATIN [Concomitant]
  10. HYDROCORTISONE [Concomitant]
  11. TAZOCILLINE [Concomitant]
  12. AMIKLIN /00391001/ [Concomitant]
  13. DIPRIVAN [Concomitant]

REACTIONS (1)
  - BONE MARROW FAILURE [None]
